FAERS Safety Report 5230113-6 (Version None)
Quarter: 2007Q1

REPORT INFORMATION
  Report Type: 
  Country: None (occurrence: None)
  Receive Date: 20070206
  Receipt Date: 20060712
  Transmission Date: 20070707
  Serious: No
  Sender: FDA-Public Use
  Company Number: US-GLAXOSMITHKLINE-A0612002A

PATIENT
  Sex: Female

DRUGS (7)
  1. PAXIL [Suspect]
     Dosage: 12.5MG PER DAY
     Route: 048
     Dates: start: 20040101
  2. PREMARIN [Concomitant]
  3. CRESTOR [Concomitant]
  4. ATENOLOL [Concomitant]
  5. VESICARE [Concomitant]
  6. ASPIRIN [Concomitant]
  7. PREVACID [Concomitant]

REACTIONS (2)
  - SINUS HEADACHE [None]
  - SINUS OPERATION [None]
